FAERS Safety Report 6554049-3 (Version None)
Quarter: 2010Q1

REPORT INFORMATION
  Report Type: 
  Country: None (occurrence: None)
  Receive Date: 20100122
  Receipt Date: 20100111
  Transmission Date: 20100710
  Serious: Yes (Other)
  Sender: FDA-Public Use
  Company Number: 2010000110

PATIENT
  Sex: Female

DRUGS (2)
  1. ERLOTINIB HYDROCHLORIDE [Suspect]
     Indication: PANCREATIC CARCINOMA
     Dosage: ORAL
     Route: 048
  2. CAPECITABINE [Suspect]
     Indication: PANCREATIC CARCINOMA

REACTIONS (2)
  - BLOOD POTASSIUM DECREASED [None]
  - DRUG TOXICITY [None]
